FAERS Safety Report 13528703 (Version 1)
Quarter: 2017Q2

REPORT INFORMATION
  Report Type: Report from Study
  Country: BR (occurrence: BR)
  Receive Date: 20170509
  Receipt Date: 20170509
  Transmission Date: 20170830
  Serious: Yes (Death, Other)
  Sender: FDA-Public Use
  Company Number: PHHY2017BR008629

PATIENT
  Age: 69 Year
  Sex: Female
  Weight: 75 kg

DRUGS (7)
  1. SYNTHROID [Concomitant]
     Active Substance: LEVOTHYROXINE SODIUM
     Indication: HORMONE REPLACEMENT THERAPY
     Dosage: 1 DF, QD
     Route: 048
  2. AMITRIPTYLINE HYDROCHLORIDE. [Concomitant]
     Active Substance: AMITRIPTYLINE HYDROCHLORIDE
     Indication: PARAESTHESIA
     Dosage: 1 DF, QD
     Route: 048
     Dates: start: 2016
  3. EXJADE [Suspect]
     Active Substance: DEFERASIROX
     Indication: ANAEMIA
     Dosage: 1 DF, QD
     Route: 048
  4. DAFLON [Concomitant]
     Active Substance: DIOSMIN\HESPERIDIN
     Indication: VARICOSE VEIN
     Dosage: 1 DF, QD
     Route: 048
  5. CLOPIDOGREL BISULFATE. [Concomitant]
     Active Substance: CLOPIDOGREL BISULFATE
     Indication: PROPHYLAXIS
     Dosage: 1 DF, QD
     Route: 048
  6. EPOETIN [Concomitant]
     Active Substance: ERYTHROPOIETIN
     Indication: BLOOD DISORDER
     Dosage: UNK UNK, TIW
     Route: 058
     Dates: start: 201602
  7. FILGRASTIM [Concomitant]
     Active Substance: FILGRASTIM
     Indication: BLOOD DISORDER
     Dosage: UNK UNK, QW
     Route: 058
     Dates: start: 201602

REACTIONS (19)
  - Ulcer [Unknown]
  - Back pain [Unknown]
  - Eating disorder [Unknown]
  - Death [Fatal]
  - Limb injury [Unknown]
  - Crying [Unknown]
  - Weight increased [Unknown]
  - Splenomegaly [Unknown]
  - Weight decreased [Unknown]
  - Nervousness [Unknown]
  - Anaemia [Unknown]
  - Paralysis [Unknown]
  - Depression [Unknown]
  - Paraesthesia [Unknown]
  - Nausea [Unknown]
  - Leukaemia [Unknown]
  - Malaise [Unknown]
  - Impaired healing [Unknown]
  - Wound [Unknown]

NARRATIVE: CASE EVENT DATE: 20170426
